FAERS Safety Report 13977958 (Version 1)
Quarter: 2017Q3

REPORT INFORMATION
  Report Type: Spontaneous
  Country: US (occurrence: None)
  Receive Date: 20170915
  Receipt Date: 20170915
  Transmission Date: 20171128
  Serious: Yes (Hospitalization)
  Sender: FDA-Public Use
  Company Number: None

PATIENT
  Sex: Female
  Weight: 72.1 kg

DRUGS (4)
  1. MERCAPTOPURINE. [Suspect]
     Active Substance: MERCAPTOPURINE
     Dates: end: 20170120
  2. METHOTREXATE. [Suspect]
     Active Substance: METHOTREXATE
     Dates: end: 20170119
  3. PREDNISONE. [Suspect]
     Active Substance: PREDNISONE
     Dates: end: 20170102
  4. VINCRISTINE SULFATE. [Suspect]
     Active Substance: VINCRISTINE SULFATE
     Dates: end: 20161229

REACTIONS (4)
  - Cholelithiasis [None]
  - Staphylococcal infection [None]
  - Diverticulum [None]
  - Blood culture positive [None]

NARRATIVE: CASE EVENT DATE: 20170104
